FAERS Safety Report 5162698-2 (Version None)
Quarter: 2006Q4

REPORT INFORMATION
  Report Type: 
  Country: None (occurrence: None)
  Receive Date: 20061201
  Receipt Date: 20060530
  Transmission Date: 20070319
  Serious: No
  Sender: FDA-Public Use
  Company Number: 8016759

PATIENT
  Age: 52 Year
  Sex: Female

DRUGS (5)
  1. AUGMENTIN '125' [Suspect]
     Indication: BRONCHITIS
     Dosage: 875MG PER DAY
     Route: 048
     Dates: start: 20060502
  2. DELSYM [Suspect]
     Indication: COUGH
     Dosage: 2TSP UNKNOWN
     Route: 048
     Dates: start: 20060502
  3. FOSAMAX [Concomitant]
     Route: 048
  4. STRATTERA [Concomitant]
     Route: 048
  5. AMBIEN [Concomitant]
     Route: 048

REACTIONS (2)
  - DIZZINESS [None]
  - NAUSEA [None]
